FAERS Safety Report 4415364-2 (Version None)
Quarter: 2004Q3

REPORT INFORMATION
  Report Type: 
  Country: None (occurrence: None)
  Receive Date: 20040804
  Receipt Date: 20040804
  Transmission Date: 20050211
  Serious: Yes (Other)
  Sender: FDA-Public Use
  Company Number: None

PATIENT

DRUGS (1)
  1. CRESTOR [Suspect]
     Dosage: 10 TABLETS BOTTLE
     Dates: start: 20040617, end: 20040617

REACTIONS (2)
  - PAIN IN EXTREMITY [None]
  - TREMOR [None]
